FAERS Safety Report 13876283 (Version 1)
Quarter: 2017Q3

REPORT INFORMATION
  Report Type: Spontaneous
  Country: GB (occurrence: GB)
  Receive Date: 20170817
  Receipt Date: 20170817
  Transmission Date: 20171127
  Serious: Yes (Other)
  Sender: FDA-Public Use
  Company Number: GB-DRREDDYS-USA/UKI/17/0092429

PATIENT
  Age: 53 Year
  Sex: Female

DRUGS (1)
  1. DULOXETINE. [Suspect]
     Active Substance: DULOXETINE
     Indication: DEPRESSION
     Route: 065

REACTIONS (5)
  - Asthenia [Unknown]
  - Blood sodium decreased [Unknown]
  - Osmotic demyelination syndrome [Unknown]
  - Antiphospholipid antibodies positive [Unknown]
  - Hypotension [Unknown]
